FAERS Safety Report 23799543 (Version 1)
Quarter: 2024Q2

REPORT INFORMATION
  Report Type: Spontaneous
  Country: US (occurrence: None)
  Receive Date: 20240428
  Receipt Date: 20240428
  Transmission Date: 20240716
  Serious: Yes (unspecified)
  Sender: FDA-Public Use
  Company Number: None

PATIENT
  Age: 41 Year
  Sex: Male
  Weight: 90 kg

DRUGS (9)
  1. MOUNJARO [Suspect]
     Active Substance: TIRZEPATIDE
  2. TRESIBA [Concomitant]
     Active Substance: INSULIN DEGLUDEC
  3. NOVOLOG [Concomitant]
     Active Substance: INSULIN ASPART
  4. FENOFIBRATE [Concomitant]
     Active Substance: FENOFIBRATE
  5. LINOSPRIL [Concomitant]
  6. ASTORSTATIN [Concomitant]
  7. ZETIA [Concomitant]
     Active Substance: EZETIMIBE
  8. FISH OIL [Concomitant]
     Active Substance: FISH OIL
  9. PREBIOTIC [Concomitant]

REACTIONS (3)
  - Diarrhoea haemorrhagic [None]
  - Food poisoning [None]
  - Weight decreased [None]

NARRATIVE: CASE EVENT DATE: 20240320
